FAERS Safety Report 15989708 (Version 3)
Quarter: 2021Q3

REPORT INFORMATION
  Report Type: Spontaneous
  Country: JP (occurrence: JP)
  Receive Date: 20190221
  Receipt Date: 20210826
  Transmission Date: 20211014
  Serious: Yes (Hospitalization)
  Sender: FDA-Public Use
  Company Number: JP-ROCHE-2270223

PATIENT
  Age: 52 Year
  Sex: Male

DRUGS (1)
  1. TECENTRIQ [Suspect]
     Active Substance: ATEZOLIZUMAB
     Indication: NON-SMALL CELL LUNG CANCER
     Route: 041
     Dates: start: 20190104, end: 2019

REACTIONS (2)
  - Platelet count decreased [Recovered/Resolved]
  - Memory impairment [Recovered/Resolved]

NARRATIVE: CASE EVENT DATE: 20190214
